FAERS Safety Report 8006988-4 (Version None)
Quarter: 2011Q4

REPORT INFORMATION
  Report Type: 
  Country: None (occurrence: None)
  Receive Date: 20111227
  Receipt Date: 20111219
  Transmission Date: 20120403
  Serious: Yes (Other)
  Sender: FDA-Public Use
  Company Number: PHHY2011IT110628

PATIENT
  Age: 48 Year
  Sex: Female

DRUGS (3)
  1. VINORELBINE [Suspect]
  2. GEMCITABINE [Suspect]
  3. DOXORUBICIN HCL [Suspect]

REACTIONS (3)
  - HEPATIC FUNCTION ABNORMAL [None]
  - TOXIC EPIDERMAL NECROLYSIS [None]
  - RENAL IMPAIRMENT [None]
